FAERS Safety Report 5266630-2 (Version None)
Quarter: 2007Q1

REPORT INFORMATION
  Report Type: 
  Country: None (occurrence: None)
  Receive Date: 20070312
  Receipt Date: 20070228
  Transmission Date: 20070707
  Serious: Yes (Hospitalization)
  Sender: FDA-Public Use
  Company Number: 237413

PATIENT
  Age: 68 Year
  Sex: Male

DRUGS (1)
  1. MABTHERA(RITUXIMAB) CONC FOR SOLUTION FOR INFUSION [Suspect]
     Dosage: 675 MG, INTRAVENOUS
     Route: 042
     Dates: start: 20060509, end: 20060526

REACTIONS (2)
  - COORDINATION ABNORMAL [None]
  - DIPLOPIA [None]
